FAERS Safety Report 19584972 (Version 3)
Quarter: 2021Q3

REPORT INFORMATION
  Report Type: Report from Study
  Country: None (occurrence: US)
  Receive Date: 20210721
  Receipt Date: 20210903
  Transmission Date: 20211014
  Serious: Yes (Hospitalization, Other)
  Sender: FDA-Public Use
  Company Number: US-ABBVIE-21K-163-3995430-00

PATIENT
  Age: 62 Year
  Sex: Male
  Weight: 97.61 kg

DRUGS (3)
  1. HUMIRA [Suspect]
     Active Substance: ADALIMUMAB
     Indication: COLITIS ULCERATIVE
     Route: 058
  2. HUMIRA [Suspect]
     Active Substance: ADALIMUMAB
     Indication: CROHN^S DISEASE
  3. HUMIRA [Suspect]
     Active Substance: ADALIMUMAB
     Indication: RHEUMATOID ARTHRITIS
     Route: 058
     Dates: start: 202103

REACTIONS (27)
  - Gastrointestinal disorder [Unknown]
  - Drug intolerance [Unknown]
  - Nausea [Recovered/Resolved]
  - Bone pain [Recovered/Resolved]
  - Colitis ulcerative [Unknown]
  - Injection site pruritus [Recovering/Resolving]
  - White blood cell disorder [Unknown]
  - Arthritis [Not Recovered/Not Resolved]
  - Skin ulcer [Unknown]
  - Malaise [Unknown]
  - Erythema [Unknown]
  - Tooth fracture [Unknown]
  - Hospitalisation [Unknown]
  - Post procedural complication [Unknown]
  - Discomfort [Unknown]
  - Cataract [Unknown]
  - Injection site erythema [Recovering/Resolving]
  - Injection site haemorrhage [Unknown]
  - Unevaluable event [Unknown]
  - Sepsis [Unknown]
  - Visual impairment [Unknown]
  - Nervous system disorder [Unknown]
  - Knee arthroplasty [Unknown]
  - Joint range of motion decreased [Unknown]
  - Tinnitus [Unknown]
  - Arthropathy [Unknown]
  - Drug ineffective [Unknown]

NARRATIVE: CASE EVENT DATE: 202012
